FAERS Safety Report 10160343 (Version 1)
Quarter: 2014Q2

REPORT INFORMATION
  Report Type: Spontaneous
  Country: CA (occurrence: CA)
  Receive Date: 20140508
  Receipt Date: 20140508
  Transmission Date: 20141212
  Serious: Yes (Hospitalization)
  Sender: FDA-Public Use
  Company Number: CA-GLAXOSMITHKLINE-A1072371A

PATIENT
  Age: 52 Year
  Sex: Female
  Weight: 64 kg

DRUGS (19)
  1. TIMENTIN [Suspect]
     Indication: PRODUCT USED FOR UNKNOWN INDICATION
     Route: 065
  2. AZITHROMYCIN [Suspect]
     Indication: PRODUCT USED FOR UNKNOWN INDICATION
     Route: 065
  3. DEXAMETHASONE [Suspect]
     Indication: PRODUCT USED FOR UNKNOWN INDICATION
     Route: 065
  4. REVLIMID [Suspect]
     Indication: PRODUCT USED FOR UNKNOWN INDICATION
     Route: 048
  5. STUDY DRUG [Suspect]
     Indication: PRODUCT USED FOR UNKNOWN INDICATION
     Dosage: 27MGM2 UNKNOWN
     Route: 042
  6. ACETYLSALICYLIC ACID [Concomitant]
     Route: 048
  7. DILAUDID [Concomitant]
     Route: 048
  8. EPREX [Concomitant]
  9. GABAPENTIN [Concomitant]
     Route: 048
  10. GARAMYCIN [Concomitant]
  11. GRAVOL [Concomitant]
     Route: 048
  12. LACTULOSE [Concomitant]
     Route: 048
  13. LASIX [Concomitant]
     Route: 048
  14. LEVOFLOXACIN [Concomitant]
  15. MAXERAN [Concomitant]
     Route: 048
  16. NAPROXEN [Concomitant]
     Route: 048
  17. NEUPOGEN [Concomitant]
  18. SALBUTAMOL [Concomitant]
     Route: 048
  19. TYLENOL [Concomitant]
     Route: 048

REACTIONS (3)
  - Pneumonia [Recovered/Resolved]
  - Productive cough [Recovered/Resolved]
  - Pyrexia [Recovered/Resolved]
